FAERS Safety Report 5366576-5 (Version None)
Quarter: 2007Q2

REPORT INFORMATION
  Report Type: 
  Country: None (occurrence: None)
  Receive Date: 20070622
  Receipt Date: 20070611
  Transmission Date: 20071010
  Serious: Yes (Other)
  Sender: FDA-Public Use
  Company Number: GB-PFIZER INC-2007041370

PATIENT
  Age: 54 Year
  Sex: Male

DRUGS (2)
  1. HYPOVASE [Suspect]
     Indication: PROSTATIC DISORDER
  2. HYPOVASE [Suspect]

REACTIONS (3)
  - ABNORMAL SENSATION IN EYE [None]
  - FLUSHING [None]
  - SKIN DISORDER [None]
